FAERS Safety Report 11968219 (Version 2)
Quarter: 2016Q1

REPORT INFORMATION
  Report Type: Spontaneous
  Country: JP (occurrence: JP)
  Receive Date: 20160127
  Receipt Date: 20160219
  Transmission Date: 20160526
  Serious: Yes (Other)
  Sender: FDA-Public Use
  Company Number: JP-009507513-1601JPN009012

PATIENT
  Age: 33 Year
  Sex: Male

DRUGS (1)
  1. REMERON [Suspect]
     Active Substance: MIRTAZAPINE
     Dosage: DAILY DOSAGE UNKNOWN
     Route: 048
     Dates: start: 201004, end: 201005

REACTIONS (1)
  - Drug eruption [Unknown]
